FAERS Safety Report 8920797 (Version 2)
Quarter: 2013Q1

REPORT INFORMATION
  Report Type: Spontaneous
  Country: FR (occurrence: FR)
  Receive Date: 20121121
  Receipt Date: 20130123
  Transmission Date: 20140127
  Serious: Yes (Hospitalization)
  Sender: FDA-Public Use
  Company Number: FR-ASTRAZENECA-2012SE86476

PATIENT
  Age: 58 Year
  Sex: Male

DRUGS (5)
  1. CRESTOR [Suspect]
     Route: 048
     Dates: start: 201001, end: 20110515
  2. ZYLORIC [Suspect]
     Route: 048
     Dates: start: 2008
  3. TAHOR [Suspect]
     Route: 048
     Dates: start: 2008, end: 2010
  4. COZAAR [Suspect]
     Route: 048
     Dates: start: 2008, end: 201001
  5. COZAAR [Suspect]
     Route: 048
     Dates: start: 201001

REACTIONS (4)
  - Photodermatosis [Recovered/Resolved]
  - Prurigo [Recovered/Resolved]
  - Pruritus [Recovered/Resolved]
  - Rash [Recovered/Resolved]
